FAERS Safety Report 23737484 (Version 1)
Quarter: 2024Q2

REPORT INFORMATION
  Report Type: Spontaneous
  Country: US (occurrence: US)
  Receive Date: 20240412
  Receipt Date: 20240412
  Transmission Date: 20240717
  Serious: No
  Sender: FDA-Public Use
  Company Number: US-SANDOZ-SDZ2024US038795

PATIENT
  Age: 61 Year
  Sex: Male

DRUGS (1)
  1. GLATOPA [Suspect]
     Active Substance: GLATIRAMER ACETATE
     Indication: Multiple sclerosis
     Dosage: 40 MG, THREE TIMES A WEEK
     Route: 058
     Dates: start: 20180920

REACTIONS (6)
  - Flushing [Unknown]
  - Chest discomfort [Unknown]
  - Dyspnoea [Unknown]
  - Hyperhidrosis [Unknown]
  - Muscle spasms [Unknown]
  - Lethargy [Unknown]

NARRATIVE: CASE EVENT DATE: 20240407
